FAERS Safety Report 4983710-7 (Version None)
Quarter: 2006Q2

REPORT INFORMATION
  Report Type: 
  Country: None (occurrence: None)
  Receive Date: 20060425
  Receipt Date: 20060425
  Transmission Date: 20061013
  Serious: Yes (Other)
  Sender: FDA-Public Use
  Company Number: None

PATIENT
  Age: 35 Year
  Sex: Female
  Weight: 56.6996 kg

DRUGS (1)
  1. ALLEGRA [Suspect]
     Indication: SEASONAL ALLERGY
     Dosage: ONE PILL   TWICE A DAY   PO
     Route: 048
     Dates: start: 20050410, end: 20050415

REACTIONS (2)
  - DEPRESSION [None]
  - SUICIDAL IDEATION [None]
